FAERS Safety Report 18940746 (Version 1)
Quarter: 2021Q1

REPORT INFORMATION
  Report Type: Spontaneous
  Country: US (occurrence: US)
  Receive Date: 20210225
  Receipt Date: 20210225
  Transmission Date: 20210420
  Serious: Yes (Other)
  Sender: FDA-Public Use
  Company Number: US-NOVOPROD-787995

PATIENT
  Age: 75 Year
  Sex: Female

DRUGS (1)
  1. VAGIFEM LD [Suspect]
     Active Substance: ESTRADIOL
     Indication: PRODUCT USED FOR UNKNOWN INDICATION
     Dosage: UNK
     Route: 067
     Dates: end: 2010

REACTIONS (3)
  - Hypertension [Unknown]
  - Coronary arterial stent insertion [Unknown]
  - Emotional distress [Unknown]
